FAERS Safety Report 7415330-9 (Version None)
Quarter: 2011Q2

REPORT INFORMATION
  Report Type: 
  Country: None (occurrence: None)
  Receive Date: 20110414
  Receipt Date: 20110408
  Transmission Date: 20111010
  Serious: Yes (Hospitalization)
  Sender: FDA-Public Use
  Company Number: A0888183A

PATIENT
  Age: 45 Year
  Sex: Male
  Weight: 124.5 kg

DRUGS (12)
  1. FENOFIBRATE [Concomitant]
  2. INSULIN [Concomitant]
  3. ALTACE [Concomitant]
  4. LOPRESSOR [Concomitant]
  5. LOPID [Concomitant]
  6. LANTUS [Concomitant]
  7. COREG [Concomitant]
  8. PLAVIX [Concomitant]
  9. AVANDIA [Suspect]
     Indication: DIABETES MELLITUS
     Route: 048
     Dates: start: 20000601, end: 20071201
  10. LIPITOR [Concomitant]
  11. SYNTHROID [Concomitant]
  12. ASPIRIN [Concomitant]

REACTIONS (2)
  - CARDIAC DISORDER [None]
  - MYOCARDIAL INFARCTION [None]
